FAERS Safety Report 6719883-5 (Version None)
Quarter: 2010Q2

REPORT INFORMATION
  Report Type: 
  Country: None (occurrence: None)
  Receive Date: 20100510
  Receipt Date: 20100510
  Transmission Date: 20101027
  Serious: No
  Sender: FDA-Public Use
  Company Number: None

PATIENT
  Age: 61 Year
  Sex: Male
  Weight: 102.5129 kg

DRUGS (1)
  1. TAMSULOSIN 0.4MG CAPSULE GLOBAL [Suspect]
     Indication: BENIGN PROSTATIC HYPERPLASIA
     Dosage: 0.4MG DAILY INGESTION
     Route: 048
     Dates: start: 20100427, end: 20100505

REACTIONS (2)
  - INCONTINENCE [None]
  - PRODUCT SUBSTITUTION ISSUE [None]
